FAERS Safety Report 5120599-X (Version None)
Quarter: 2006Q4

REPORT INFORMATION
  Report Type: 
  Country: None (occurrence: None)
  Receive Date: 20061002
  Receipt Date: 20060921
  Transmission Date: 20070319
  Serious: Yes (Congenital Anomaly)
  Sender: FDA-Public Use
  Company Number: 2006S1000229

PATIENT
  Sex: Female

DRUGS (1)
  1. ACITRETIN [Suspect]
     Dosage: TRPL
     Route: 064

REACTIONS (4)
  - CONGENITAL ANOMALY [None]
  - DRUG EXPOSURE DURING PREGNANCY [None]
  - LIMB DEFORMITY [None]
  - PREGNANCY [None]
